FAERS Safety Report 4368119-1 (Version None)
Quarter: 2004Q2

REPORT INFORMATION
  Report Type: 
  Country: None (occurrence: None)
  Receive Date: 20040602
  Receipt Date: 20040524
  Transmission Date: 20050107
  Serious: Yes (Other)
  Sender: FDA-Public Use
  Company Number: GB-MERCK-0405GBR00176

PATIENT
  Age: 9 Year
  Sex: Male
  Weight: 32 kg

DRUGS (4)
  1. ALBUTEROL [Concomitant]
     Route: 055
  2. FLUTICASONE PROPIONATE [Concomitant]
     Route: 055
  3. SINGULAIR [Suspect]
     Indication: ASTHMA
     Route: 048
     Dates: start: 20040212, end: 20040220
  4. SALMETEROL XINAFOATE [Concomitant]
     Route: 055

REACTIONS (7)
  - ABDOMINAL PAIN [None]
  - ANXIETY [None]
  - CRYING [None]
  - DEPRESSION [None]
  - DIZZINESS [None]
  - LOOSE STOOLS [None]
  - NAUSEA [None]
